FAERS Safety Report 7879110-2 (Version None)
Quarter: 2011Q4

REPORT INFORMATION
  Report Type: 
  Country: None (occurrence: None)
  Receive Date: 20111101
  Receipt Date: 20111020
  Transmission Date: 20120403
  Serious: Yes (Hospitalization, Other)
  Sender: FDA-Public Use
  Company Number: US-BAYER-201039207NA

PATIENT
  Age: 48 Year
  Sex: Female
  Weight: 84 kg

DRUGS (11)
  1. YASMIN [Suspect]
     Indication: CONTRACEPTION
     Dates: start: 20020304, end: 20060101
  2. YASMIN [Suspect]
     Indication: MENORRHAGIA
  3. YASMIN [Suspect]
     Indication: PREMENSTRUAL SYNDROME
  4. VICODIN [Concomitant]
  5. BEXTRA [Concomitant]
     Indication: PRODUCT USED FOR UNKNOWN INDICATION
     Dosage: UNK
     Dates: start: 20030903
  6. LEVAQUIN [Concomitant]
  7. COUMADIN [Concomitant]
     Dosage: 7.5 MG, QD
  8. YASMIN [Suspect]
     Indication: ENDOMETRIOSIS
  9. ALBUTEROL INHALER [Concomitant]
     Indication: DYSPNOEA
  10. IBUPROFEN [Concomitant]
     Indication: PLEURITIC PAIN
  11. CLARINEX [Concomitant]
     Indication: PRODUCT USED FOR UNKNOWN INDICATION

REACTIONS (2)
  - PULMONARY EMBOLISM [None]
  - DEEP VEIN THROMBOSIS [None]
